FAERS Safety Report 17165525 (Version 2)
Quarter: 2019Q4

REPORT INFORMATION
  Report Type: Spontaneous
  Country: BR (occurrence: BR)
  Receive Date: 20191217
  Receipt Date: 20191227
  Transmission Date: 20200122
  Serious: Yes (Other)
  Sender: FDA-Public Use
  Company Number: BR-PFIZER INC-2016377337

PATIENT
  Age: 80 Year
  Sex: Female
  Weight: 66 kg

DRUGS (9)
  1. FRONTAL XR [Suspect]
     Active Substance: ALPRAZOLAM
     Indication: RELAXATION THERAPY
     Dosage: UNK, 2X/DAY (HALF TABLET IN THE MORNING AND 1 TABLET IN THE EVENING)
     Route: 048
     Dates: start: 2005
  2. FRONTAL XR [Suspect]
     Active Substance: ALPRAZOLAM
     Dosage: 1 DF, UNK
  3. FRONTAL XR [Suspect]
     Active Substance: ALPRAZOLAM
     Indication: ANTIDEPRESSANT THERAPY
     Dosage: 0.5 DF, AS NEEDED
  4. ARADOIS [Concomitant]
     Active Substance: LOSARTAN POTASSIUM
     Dosage: UNK
  5. SYNTHROID [Concomitant]
     Active Substance: LEVOTHYROXINE SODIUM
     Dosage: UNK
     Dates: start: 2005
  6. FRONTAL XR [Suspect]
     Active Substance: ALPRAZOLAM
     Dosage: 0.5 DF, DAILY
  7. FRONTAL XR [Suspect]
     Active Substance: ALPRAZOLAM
     Indication: ANXIETY
     Dosage: 0.5 MG, 2X/DAY (1 TABLET IN THE MORNING AND 1 TABLET AT NIGHT)
  8. NEOVITE LUTEIN [Concomitant]
     Dosage: UNK
     Dates: start: 2015
  9. PROPRANOLOL [Concomitant]
     Active Substance: PROPRANOLOL HYDROCHLORIDE
     Dosage: UNK

REACTIONS (7)
  - Malaise [Recovered/Resolved]
  - Incorrect product administration duration [Unknown]
  - Product prescribing error [Unknown]
  - Macular degeneration [Not Recovered/Not Resolved]
  - Agitation [Recovered/Resolved]
  - Off label use [Unknown]
  - Intentional product misuse [Unknown]

NARRATIVE: CASE EVENT DATE: 2005
